FAERS Safety Report 5007454-0 (Version None)
Quarter: 2006Q2

REPORT INFORMATION
  Report Type: 
  Country: None (occurrence: None)
  Receive Date: 20060519
  Receipt Date: 20060519
  Transmission Date: 20061013
  Serious: Yes (Other)
  Sender: FDA-Public Use
  Company Number: None

PATIENT
  Age: 46 Year
  Sex: Male
  Weight: 114.3065 kg

DRUGS (1)
  1. PREVACID [Suspect]
     Indication: SINUSITIS
     Dosage: 30MG DAILY PO
     Route: 048
     Dates: start: 20060504, end: 20060517

REACTIONS (5)
  - CHROMATURIA [None]
  - FATIGUE [None]
  - JAUNDICE [None]
  - OCULAR ICTERUS [None]
  - SINUSITIS [None]
